FAERS Safety Report 25805013 (Version 1)
Quarter: 2025Q3

REPORT INFORMATION
  Report Type: Spontaneous
  Country: US (occurrence: US)
  Receive Date: 20250916
  Receipt Date: 20250916
  Transmission Date: 20251021
  Serious: No
  Sender: BRISTOL-MYERS SQUIBB COMPANY
  Company Number: US-BRISTOL-MYERS SQUIBB COMPANY-2025-127200

PATIENT
  Age: 71 Year
  Sex: Female

DRUGS (1)
  1. POMALYST [Suspect]
     Active Substance: POMALIDOMIDE
     Indication: B-cell lymphoma

REACTIONS (5)
  - Nasal congestion [Unknown]
  - Respiratory tract congestion [Unknown]
  - Cough [Unknown]
  - Chills [Unknown]
  - Off label use [Unknown]
